FAERS Safety Report 5826458-9 (Version None)
Quarter: 2008Q3

REPORT INFORMATION
  Report Type: 
  Country: None (occurrence: None)
  Receive Date: 20080729
  Receipt Date: 20080717
  Transmission Date: 20090109
  Serious: Yes (Other)
  Sender: FDA-Public Use
  Company Number: CA-PFIZER INC-2008061600

PATIENT
  Age: 48 Year
  Sex: Female

DRUGS (2)
  1. LYRICA [Suspect]
     Indication: PAIN
     Route: 048
  2. GABAPENTIN [Suspect]
     Indication: PAIN
     Dosage: DAILY DOSE:1800MG
     Route: 048

REACTIONS (8)
  - ACTIVITIES OF DAILY LIVING IMPAIRED [None]
  - DISTURBANCE IN ATTENTION [None]
  - DIZZINESS [None]
  - DYSGRAPHIA [None]
  - FEELING ABNORMAL [None]
  - MEMORY IMPAIRMENT [None]
  - SOMNOLENCE [None]
  - THINKING ABNORMAL [None]
